FAERS Safety Report 4397983-5 (Version None)
Quarter: 2004Q3

REPORT INFORMATION
  Report Type: 
  Country: None (occurrence: None)
  Receive Date: 20040713
  Receipt Date: 20040706
  Transmission Date: 20050211
  Serious: Yes (Other)
  Sender: FDA-Public Use
  Company Number: 2004-0007211

PATIENT
  Sex: Male

DRUGS (6)
  1. VIREAD [Suspect]
     Indication: HIV INFECTION
     Dates: start: 20031104
  2. EPIVIR [Concomitant]
  3. SUSTIVA [Concomitant]
  4. ZERIT [Concomitant]
  5. VIRACEPT INELFINAVIR MESILATE) [Concomitant]
  6. COMBIVIR [Concomitant]

REACTIONS (2)
  - CONGENITAL PYELOCALIECTASIS [None]
  - DRUG EXPOSURE DURING PREGNANCY [None]
